FAERS Safety Report 10414631 (Version 2)
Quarter: 2015Q3

REPORT INFORMATION
  Report Type: Spontaneous
  Country: US (occurrence: US)
  Receive Date: 20140828
  Receipt Date: 20150730
  Transmission Date: 20151125
  Serious: No
  Sender: FDA-Public Use
  Company Number: US-BIOGENIDEC-2014BI085341

PATIENT
  Age: 55 Year
  Sex: Female

DRUGS (4)
  1. TECFIDERA [Suspect]
     Active Substance: DIMETHYL FUMARATE
     Indication: RELAPSING-REMITTING MULTIPLE SCLEROSIS
     Route: 048
  2. AVONEX [Concomitant]
     Active Substance: INTERFERON BETA-1A
     Route: 030
     Dates: start: 19990223
  3. FLOMAX [Concomitant]
     Active Substance: TAMSULOSIN HYDROCHLORIDE
     Indication: PRODUCT USED FOR UNKNOWN INDICATION
  4. AVONEX [Concomitant]
     Active Substance: INTERFERON BETA-1A
     Route: 030

REACTIONS (1)
  - Night sweats [Not Recovered/Not Resolved]

NARRATIVE: CASE EVENT DATE: 201505
